FAERS Safety Report 18367979 (Version 1)
Quarter: 2020Q4

REPORT INFORMATION
  Report Type: Spontaneous
  Country: AT (occurrence: AT)
  Receive Date: 20201009
  Receipt Date: 20201009
  Transmission Date: 20210114
  Serious: Yes (Hospitalization, Other)
  Sender: FDA-Public Use
  Company Number: AT-TAKEDA-2020TUS005447

PATIENT
  Age: 36 Year
  Sex: Female
  Weight: 57 kg

DRUGS (1)
  1. ENTYVIO [Suspect]
     Active Substance: VEDOLIZUMAB
     Indication: CROHN^S DISEASE
     Dosage: UNK
     Route: 042
     Dates: start: 201904

REACTIONS (5)
  - Crohn^s disease [Unknown]
  - Abscess [Unknown]
  - Pregnancy [Recovered/Resolved]
  - Premature baby [Unknown]
  - Enterocolonic fistula [Unknown]

NARRATIVE: CASE EVENT DATE: 20200624
